FAERS Safety Report 9945702 (Version 1)
Quarter: 2014Q1

REPORT INFORMATION
  Report Type: Report from Study
  Country: US (occurrence: US)
  Receive Date: 20140303
  Receipt Date: 20140303
  Transmission Date: 20141002
  Serious: No
  Sender: FDA-Public Use
  Company Number: US-ABBVIE-13P-163-1049136-00

PATIENT
  Age: 64 Year
  Sex: Female

DRUGS (7)
  1. HUMIRA [Suspect]
     Indication: RHEUMATOID ARTHRITIS
  2. CYCLOBENZAPRINE [Concomitant]
     Indication: BACK PAIN
     Dosage: 10 MG 1-2 TABLETS AS REQUIRED AT BEDTIME
  3. ATENOLOL [Concomitant]
     Indication: HYPERTENSION
     Dosage: 100 MG DAILY
  4. ATENOLOL [Concomitant]
     Indication: MIGRAINE
  5. METHOTREXATE [Concomitant]
     Indication: PRODUCT USED FOR UNKNOWN INDICATION
     Dosage: 2.5 MG, 6 TABLETS WEEKLY
  6. HYDROXYZINE [Concomitant]
     Indication: HYPERSENSITIVITY
  7. FOLIC ACID [Concomitant]
     Indication: PRODUCT USED FOR UNKNOWN INDICATION
     Dosage: 1 MG DAILY

REACTIONS (8)
  - Injection site pain [Not Recovered/Not Resolved]
  - Wrong technique in drug usage process [Not Recovered/Not Resolved]
  - Device malfunction [Not Recovered/Not Resolved]
  - Stress [Not Recovered/Not Resolved]
  - Drug ineffective [Not Recovered/Not Resolved]
  - Wrong technique in drug usage process [Not Recovered/Not Resolved]
  - Incorrect dose administered [Not Recovered/Not Resolved]
  - Drug ineffective [Not Recovered/Not Resolved]
